FAERS Safety Report 16381963 (Version 1)
Quarter: 2019Q2

REPORT INFORMATION
  Report Type: Spontaneous
  Country: US (occurrence: US)
  Receive Date: 20190603
  Receipt Date: 20190603
  Transmission Date: 20190711
  Serious: Yes (Death, Hospitalization)
  Sender: FDA-Public Use
  Company Number: US-HORIZON-RAV-0154-2019

PATIENT
  Age: 33 Year
  Sex: Male

DRUGS (1)
  1. RAVICTI [Suspect]
     Active Substance: GLYCEROL PHENYLBUTYRATE
     Indication: UREA CYCLE DISORDER
     Dosage: 5 ML (5.5 G TOTAL) 3 TIMES DAILY
     Route: 048

REACTIONS (3)
  - Influenza [Fatal]
  - Pneumonia [Fatal]
  - Acute respiratory distress syndrome [Fatal]
